FAERS Safety Report 8224245-8 (Version None)
Quarter: 2012Q1

REPORT INFORMATION
  Report Type: 
  Country: None (occurrence: None)
  Receive Date: 20120321
  Receipt Date: 20120307
  Transmission Date: 20120608
  Serious: Yes (Other)
  Sender: FDA-Public Use
  Company Number: PHHY2012MX020577

PATIENT
  Age: 75 Year
  Sex: Female

DRUGS (3)
  1. MICARDIS [Concomitant]
     Indication: HYPERTENSION
     Dosage: 3 DF, DAILY
     Dates: start: 20030301
  2. RASILEZ [Suspect]
     Indication: HYPERTENSION
     Dosage: 1 DF, QD
     Dates: start: 20100601
  3. IMDUR [Concomitant]
     Indication: HYPERTENSION
     Dosage: 1 DF, DAILY
     Dates: start: 20100601

REACTIONS (3)
  - SPINAL DISORDER [None]
  - ARTHRALGIA [None]
  - GROIN PAIN [None]
